FAERS Safety Report 8731025 (Version 2)
Quarter: 2012Q4

REPORT INFORMATION
  Report Type: 
  Country: US (occurrence: None)
  Receive Date: 20120730
  Receipt Date: 20120808
  Transmission Date: 20130627
  Serious: Yes (Death)
  Sender: FDA-Public Use
  Company Number: AEUSA201200373

PATIENT
  Age: 88 Year
  Sex: Male
  Weight: 73 kg

DRUGS (11)
  1. PROFILNINE SD [Suspect]
     Indication: COAGULOPATHY
     Dosage: 3700 IU;1X;IV
     Route: 042
     Dates: start: 20120606, end: 20120606
  2. WARFARIN [Concomitant]
  3. CRANBERRY EXTRACT [Concomitant]
  4. FISH OIL [Concomitant]
  5. GEMFIBROZIL [Concomitant]
  6. LISINOPRIL [Concomitant]
  7. LOVASTATIN [Concomitant]
  8. METOPROLOL [Concomitant]
  9. MULTIVITAMIN [Concomitant]
  10. PIOGLITAZONE [Concomitant]
  11. VITAMIN E [Concomitant]

REACTIONS (8)
  - Unresponsive to stimuli [None]
  - Apnoea [None]
  - Cyanosis [None]
  - Femoral pulse decreased [None]
  - Mobility decreased [None]
  - Snoring [None]
  - Blood pressure decreased [None]
  - Electrocardiogram ST segment elevation [None]
